FAERS Safety Report 15116755 (Version 1)
Quarter: 2018Q2

REPORT INFORMATION
  Report Type: Spontaneous
  Country: US (occurrence: US)
  Receive Date: 20180612
  Receipt Date: 20180612
  Transmission Date: 20180711
  Serious: Yes (Hospitalization)
  Sender: FDA-Public Use
  Company Number: None

PATIENT
  Age: 52 Year
  Sex: Female

DRUGS (6)
  1. ENBREL [Suspect]
     Active Substance: ETANERCEPT
     Indication: RHEUMATOID ARTHRITIS
     Dosage: 50 MG SUBCUTANEOUS ONCE WEEKLY
     Route: 058
     Dates: start: 20170728
  2. OMEPRAZOLE 40 [Concomitant]
  3. PREDNISONE 1 [Concomitant]
  4. HYDROXYCHLOROQUINE 200 [Concomitant]
  5. PREDNISONE 5 [Concomitant]
  6. CELECOXIB 200 [Concomitant]
     Active Substance: CELECOXIB

REACTIONS (1)
  - Cardiac tamponade [None]

NARRATIVE: CASE EVENT DATE: 20180609
